FAERS Safety Report 14244881 (Version 2)
Quarter: 2017Q4

REPORT INFORMATION
  Report Type: Spontaneous
  Country: KR (occurrence: KR)
  Receive Date: 20171201
  Receipt Date: 20171221
  Transmission Date: 20180321
  Serious: Yes (Hospitalization, Other)
  Sender: FDA-Public Use
  Company Number: KR-009507513-1711KOR009561

PATIENT
  Age: 58 Year
  Sex: Male

DRUGS (5)
  1. BETALOC [Concomitant]
     Active Substance: METOPROLOL TARTRATE
     Indication: CAROTID ARTERY STENOSIS
     Dosage: 1 TABLET, QD
     Route: 048
     Dates: start: 20170113, end: 20170418
  2. ATOZET [Suspect]
     Active Substance: ATORVASTATIN CALCIUM\EZETIMIBE
     Indication: PRIMARY HYPERCHOLESTEROLAEMIA
     Dosage: 10/20 MG (1 TABLET) QD
     Route: 048
     Dates: start: 20170113
  3. KOMBIGLYZE XR [Concomitant]
     Active Substance: METFORMIN HYDROCHLORIDE\SAXAGLIPTIN HYDROCHLORIDE
     Indication: DIABETES MELLITUS
     Dosage: 5/500 MG (1 TABLET), QD
     Route: 048
     Dates: start: 20170113, end: 20170801
  4. EZETROL [Concomitant]
     Active Substance: EZETIMIBE
     Indication: HYPERCHOLESTEROLAEMIA
     Dosage: 10 MG (1 TABLET), QD
     Route: 048
     Dates: start: 20170629
  5. CILOSTAN [Concomitant]
     Indication: DIABETES PROPHYLAXIS
     Dosage: 200 MG (1 TABLET), QD
     Route: 048
     Dates: start: 20170113, end: 20170418

REACTIONS (1)
  - Coronary artery stenosis [Recovered/Resolved]

NARRATIVE: CASE EVENT DATE: 20170412
